FAERS Safety Report 4294013-0 (Version None)
Quarter: 2004Q1

REPORT INFORMATION
  Report Type: 
  Country: None (occurrence: None)
  Receive Date: 20040211
  Receipt Date: 20040128
  Transmission Date: 20041129
  Serious: Yes (Hospitalization, Other)
  Sender: FDA-Public Use
  Company Number: USA031254952

PATIENT
  Age: 81 Year
  Sex: Female
  Weight: 76 kg

DRUGS (1)
  1. EVISTA [Suspect]
     Dates: start: 20001101, end: 20031101

REACTIONS (2)
  - ENDOMETRIAL CANCER STAGE I [None]
  - VAGINAL DISCHARGE [None]
